FAERS Safety Report 23448856 (Version 2)
Quarter: 2025Q1

REPORT INFORMATION
  Report Type: Spontaneous
  Country: FR (occurrence: FR)
  Receive Date: 20240128
  Receipt Date: 20250131
  Transmission Date: 20250408
  Serious: Yes (Death, Life-Threatening, Hospitalization, Other)
  Sender: FERRING
  Company Number: None

PATIENT

DRUGS (13)
  1. FIRMAGON [Suspect]
     Active Substance: DEGARELIX ACETATE
     Indication: Prostate cancer metastatic
     Dosage: 80 MG, MONTHLY
     Route: 058
     Dates: start: 202309, end: 20231211
  2. ZYTIGA [Concomitant]
     Active Substance: ABIRATERONE ACETATE
     Dosage: 1000 MG, 1 TIME DAILY (2 TABLETS PER DAY IN A SINGLE DOSE)
     Route: 065
     Dates: start: 202309
  3. AMLODIPINE [Concomitant]
     Active Substance: AMLODIPINE BESYLATE
     Route: 065
  4. ESOMEPRAZOLE [Concomitant]
     Active Substance: ESOMEPRAZOLE
     Dosage: 40 MG, DAILY
     Route: 065
  5. EZETIMIBE [Concomitant]
     Active Substance: EZETIMIBE
     Dosage: 10 MG, DAILY
     Route: 065
  6. PREGABALIN [Concomitant]
     Active Substance: PREGABALIN
     Dosage: 300 MG, DAILY
     Route: 065
  7. VALSARTAN [Concomitant]
     Active Substance: VALSARTAN
     Route: 065
  8. POLYETHYLENE GLYCOLS [Concomitant]
     Active Substance: POLYETHYLENE GLYCOLS
     Route: 065
  9. ONDANSETRON [Concomitant]
     Active Substance: ONDANSETRON
     Route: 065
  10. OXAZEPAM [Concomitant]
     Active Substance: OXAZEPAM
     Route: 065
  11. DAFALGAN [Concomitant]
     Active Substance: ACETAMINOPHEN
     Route: 065
  12. PREDNISONE [Concomitant]
     Active Substance: PREDNISONE
     Route: 065
  13. ERYTHROPOIETIN [Concomitant]
     Active Substance: ERYTHROPOIETIN
     Dosage: 20000 INTERNATIONAL UNIT, WEEKLY (EVERY FRIDAY)

REACTIONS (4)
  - Shock haemorrhagic [Fatal]
  - Administration site haematoma [Not Recovered/Not Resolved]
  - Product administered at inappropriate site [Unknown]
  - Influenza [Unknown]

NARRATIVE: CASE EVENT DATE: 20231101
